FAERS Safety Report 21267296 (Version 2)
Quarter: 2022Q3

REPORT INFORMATION
  Report Type: Spontaneous
  Country: CA (occurrence: CA)
  Receive Date: 20220829
  Receipt Date: 20220928
  Transmission Date: 20221027
  Serious: Yes (Death, Other)
  Sender: FDA-Public Use
  Company Number: CA-GILEAD-2022-0595355

PATIENT
  Age: 51 Year
  Sex: Female
  Weight: 108 kg

DRUGS (20)
  1. VEKLURY [Suspect]
     Active Substance: REMDESIVIR
     Indication: COVID-19
     Dosage: 200 MG, UNK
     Route: 042
     Dates: start: 2022, end: 2022
  2. VEKLURY [Suspect]
     Active Substance: REMDESIVIR
     Dosage: 100 MG, QD
     Route: 042
     Dates: start: 2022, end: 2022
  3. SEPTRA DS [Concomitant]
     Active Substance: SULFAMETHOXAZOLE\TRIMETHOPRIM
  4. AMITRIPTYLINE [Concomitant]
     Active Substance: AMITRIPTYLINE
  5. ASPIRIN [Concomitant]
     Active Substance: ASPIRIN
  6. ATORVASTATIN [Concomitant]
     Active Substance: ATORVASTATIN
  7. DEXAMETHASONE [Concomitant]
     Active Substance: DEXAMETHASONE
  8. ENOXAPARIN [Concomitant]
     Active Substance: ENOXAPARIN
  9. FLUOXETINE [Concomitant]
     Active Substance: FLUOXETINE HYDROCHLORIDE
  10. HUMALOG [Concomitant]
     Active Substance: INSULIN LISPRO
  11. JARDIANCE [Concomitant]
     Active Substance: EMPAGLIFLOZIN
  12. METFORMIN [Concomitant]
     Active Substance: METFORMIN HYDROCHLORIDE
  13. MORPHINE [Concomitant]
     Active Substance: MORPHINE
  14. NARCAN [Concomitant]
     Active Substance: NALOXONE HYDROCHLORIDE
  15. NICOTINE [Concomitant]
     Active Substance: NICOTINE
  16. PANTOPRAZOLE [Concomitant]
     Active Substance: PANTOPRAZOLE
  17. PRAMIPEXOLE [Concomitant]
     Active Substance: PRAMIPEXOLE
  18. PREGABALIN [Concomitant]
     Active Substance: PREGABALIN
  19. QUINAPRIL [Concomitant]
     Active Substance: QUINAPRIL
  20. SULFATRIM [Suspect]
     Active Substance: SULFAMETHOXAZOLE\TRIMETHOPRIM
     Indication: Localised infection
     Dosage: 1 DOSAGE FORM, BID
     Route: 048

REACTIONS (8)
  - Acute kidney injury [Fatal]
  - Cardiac arrest [Fatal]
  - Liver function test increased [Fatal]
  - Oxygen saturation decreased [Fatal]
  - Respiratory arrest [Fatal]
  - Respiratory distress [Fatal]
  - SARS-CoV-2 test positive [Fatal]
  - Somnolence [Fatal]
